FAERS Safety Report 9171433 (Version 2)
Quarter: 2013Q3

REPORT INFORMATION
  Report Type: Spontaneous
  Country: GB (occurrence: GB)
  Receive Date: 20130319
  Receipt Date: 20130702
  Transmission Date: 20140515
  Serious: Yes (Other)
  Sender: FDA-Public Use
  Company Number: GB-ROCHE-1199746

PATIENT
  Age: 75 Year
  Sex: Female

DRUGS (1)
  1. LUCENTIS [Suspect]
     Indication: AGE-RELATED MACULAR DEGENERATION
     Route: 050

REACTIONS (5)
  - Age-related macular degeneration [Recovering/Resolving]
  - Eye haemorrhage [Recovering/Resolving]
  - Eye pain [Recovering/Resolving]
  - Foreign body sensation in eyes [Recovering/Resolving]
  - Neovascularisation [Recovering/Resolving]
